FAERS Safety Report 17170351 (Version 1)
Quarter: 2019Q4

REPORT INFORMATION
  Report Type: Report from Study
  Country: IT (occurrence: IT)
  Receive Date: 20191218
  Receipt Date: 20191218
  Transmission Date: 20200122
  Serious: Yes (Other)
  Sender: FDA-Public Use
  Company Number: IT-PFIZER INC-2019540377

PATIENT
  Age: 21 Year
  Sex: Female

DRUGS (4)
  1. BLEOMYCIN SULFATE [Suspect]
     Active Substance: BLEOMYCIN SULFATE
     Indication: LYMPHOMA
     Dosage: 16.9 MG, CYCLIC
     Route: 041
     Dates: start: 20191004
  2. VINBLASTINE SULFATE. [Suspect]
     Active Substance: VINBLASTINE SULFATE
     Indication: LYMPHOMA
     Dosage: 10.14 MG, CYCLIC
     Route: 041
     Dates: start: 20191004
  3. DOXORUBICIN HCL [Suspect]
     Active Substance: DOXORUBICIN HYDROCHLORIDE
     Indication: LYMPHOMA
     Dosage: 42.25 MG, CYCLIC
     Route: 041
     Dates: start: 20191004
  4. DACARBAZINE. [Suspect]
     Active Substance: DACARBAZINE
     Indication: LYMPHOMA
     Dosage: 633.8 MG, CYCLIC
     Route: 043
     Dates: start: 20191004

REACTIONS (3)
  - Ear pain [Recovering/Resolving]
  - Tinnitus [Recovering/Resolving]
  - Pyrexia [Recovering/Resolving]

NARRATIVE: CASE EVENT DATE: 20191005
